APPROVED DRUG PRODUCT: PROMETRIUM
Active Ingredient: PROGESTERONE
Strength: 200MG
Dosage Form/Route: CAPSULE;ORAL
Application: N019781 | Product #002 | TE Code: AB
Applicant: ACERTIS PHARMACEUTICALS LLC
Approved: Oct 15, 1999 | RLD: Yes | RS: Yes | Type: RX